FAERS Safety Report 23041178 (Version 2)
Quarter: 2023Q4

REPORT INFORMATION
  Report Type: Report from Study
  Country: US (occurrence: US)
  Receive Date: 20231007
  Receipt Date: 20231212
  Transmission Date: 20240109
  Serious: No
  Sender: FDA-Public Use
  Company Number: US-002147023-NVSC2023US215811

PATIENT
  Sex: Female

DRUGS (1)
  1. KESIMPTA [Suspect]
     Active Substance: OFATUMUMAB
     Indication: Relapsing multiple sclerosis
     Dosage: 20 MG, QMO
     Route: 065
     Dates: start: 20230903

REACTIONS (11)
  - Asthenia [Unknown]
  - Hypoaesthesia [Unknown]
  - Mobility decreased [Unknown]
  - Pain in extremity [Unknown]
  - Injection site pain [Unknown]
  - Injection site bruising [Unknown]
  - Influenza like illness [Unknown]
  - Headache [Unknown]
  - Migraine [Unknown]
  - Restlessness [Unknown]
  - Product dose omission issue [Unknown]
